FAERS Safety Report 4441270-3 (Version None)
Quarter: 2004Q3

REPORT INFORMATION
  Report Type: 
  Country: None (occurrence: None)
  Receive Date: 20040728
  Receipt Date: 20040505
  Transmission Date: 20050211
  Serious: No
  Sender: FDA-Public Use
  Company Number: USA040566764

PATIENT
  Age: 11 Year
  Sex: Male

DRUGS (3)
  1. STRATTERA [Suspect]
     Dates: start: 20040401
  2. RITALIN [Concomitant]
  3. ADDERALL 10 [Concomitant]

REACTIONS (1)
  - ABNORMAL BEHAVIOUR [None]
